FAERS Safety Report 8830397 (Version 4)
Quarter: 2012Q4

REPORT INFORMATION
  Report Type: 
  Country: US (occurrence: US)
  Receive Date: 20121009
  Receipt Date: 20121214
  Transmission Date: 20130627
  Serious: No
  Sender: FDA-Public Use
  Company Number: US-PFIZER INC-2012245989

PATIENT
  Age: 85 Year
  Sex: Male
  Weight: 92.52 kg

DRUGS (12)
  1. SUTENT [Suspect]
     Indication: METASTATIC RENAL CELL CARCINOMA
     Dosage: 50 mg, UNK
     Dates: start: 20120915, end: 20120927
  2. SUTENT [Suspect]
     Dosage: 50 mg, daily
     Dates: start: 20121012, end: 20121019
  3. SUTENT [Suspect]
     Dosage: UNK
     Dates: start: 20121109
  4. TRAZODONE [Concomitant]
     Indication: SLEEP DIFFICULT
     Dosage: 50 mg, 1-2 tabs at HS as needed
  5. TEMAZEPAM [Concomitant]
     Indication: SLEEP DIFFICULT
     Dosage: 15 mg, 1-2 tabs at HS as needed
  6. ACTOS [Concomitant]
     Dosage: 15 mg, Daily
  7. GLIPIZIDE [Concomitant]
     Dosage: 10 mg, Daily
  8. SIMVASTATIN [Concomitant]
     Dosage: 40 mg, in PM
  9. CARVEDILOL [Concomitant]
     Dosage: 12.5 mg, 2x/day
  10. LOSARTAN [Concomitant]
     Dosage: 50 mg, Daily
  11. FUROSEMIDE [Concomitant]
     Dosage: 80 mg, Daily
  12. FERREX [Concomitant]
     Dosage: 150 mg daily

REACTIONS (3)
  - Haematuria [Not Recovered/Not Resolved]
  - Dysgeusia [Unknown]
  - Diarrhoea [Recovered/Resolved]
